FAERS Safety Report 5674131-2 (Version None)
Quarter: 2008Q1

REPORT INFORMATION
  Report Type: 
  Country: None (occurrence: None)
  Receive Date: 20080320
  Receipt Date: 20080307
  Transmission Date: 20080703
  Serious: Yes (Hospitalization, Other)
  Sender: FDA-Public Use
  Company Number: US-TYCO HEALTHCARE/MALLINCKRODT-T200800339

PATIENT

DRUGS (1)
  1. RESTORIL [Suspect]
     Indication: SLEEP DISORDER
     Dosage: 2 QPM (TOTAL 30 MG)
     Route: 048
     Dates: start: 20050101

REACTIONS (3)
  - DRUG INEFFECTIVE [None]
  - GALLBLADDER DISORDER [None]
  - POST PROCEDURAL COMPLICATION [None]
